FAERS Safety Report 7785760-4 (Version None)
Quarter: 2011Q3

REPORT INFORMATION
  Report Type: 
  Country: None (occurrence: None)
  Receive Date: 20110929
  Receipt Date: 20110926
  Transmission Date: 20111222
  Serious: Yes (Death)
  Sender: FDA-Public Use
  Company Number: RU-SANOFI-AVENTIS-2011SA062582

PATIENT
  Age: 75 Year
  Sex: Male

DRUGS (2)
  1. XELODA [Suspect]
     Route: 048
     Dates: start: 20110101, end: 20110101
  2. ELOXATIN [Suspect]
     Route: 042
     Dates: start: 20110101, end: 20110401

REACTIONS (3)
  - DRUG ADMINISTRATION ERROR [None]
  - CONDITION AGGRAVATED [None]
  - GASTRIC CANCER STAGE IV [None]
